FAERS Safety Report 6564548-6 (Version None)
Quarter: 2010Q1

REPORT INFORMATION
  Report Type: 
  Country: None (occurrence: None)
  Receive Date: 20100201
  Receipt Date: 20100118
  Transmission Date: 20100710
  Serious: Yes (Hospitalization, Other)
  Sender: FDA-Public Use
  Company Number: PHEH2007US13316

PATIENT
  Sex: Male

DRUGS (11)
  1. ZOMETA [Suspect]
  2. AREDIA [Suspect]
     Dosage: UNK
     Dates: start: 20020101, end: 20040501
  3. NEURONTIN [Concomitant]
  4. DECADRON                                /CAN/ [Concomitant]
     Dosage: 40 MG, UNK
     Dates: start: 20020101, end: 20070801
  5. PERIDEX [Concomitant]
  6. LORTAB [Concomitant]
  7. OXYCONTIN [Concomitant]
  8. REVLIMID [Concomitant]
     Dosage: 25 MG, QD
  9. CYTOXAN [Concomitant]
  10. VINCRISTINE + ADRIAMYCIN + DEXAMETHASONE [Concomitant]
     Dosage: UNK
     Dates: end: 20020101
  11. AUGMENTIN                               /SCH/ [Concomitant]
     Dosage: 875 MG, BID

REACTIONS (15)
  - BACK PAIN [None]
  - BONE DENSITY DECREASED [None]
  - BONE DISORDER [None]
  - COMPRESSION FRACTURE [None]
  - DEBRIDEMENT [None]
  - DEFORMITY [None]
  - EMPHYSEMA [None]
  - INFECTION [None]
  - KYPHOSIS [None]
  - OSTEONECROSIS [None]
  - PAIN [None]
  - PAIN IN JAW [None]
  - PRIMARY SEQUESTRUM [None]
  - SEQUESTRECTOMY [None]
  - TOOTH EXTRACTION [None]
